FAERS Safety Report 6662615-X (Version None)
Quarter: 2010Q1

REPORT INFORMATION
  Report Type: 
  Country: None (occurrence: None)
  Receive Date: 20100329
  Receipt Date: 20100316
  Transmission Date: 20100710
  Serious: Yes (Other)
  Sender: FDA-Public Use
  Company Number: PL-1181275

PATIENT
  Age: 17 Year
  Sex: Male

DRUGS (1)
  1. FLUORESCITE [Suspect]
     Dosage: INTRAVENOUS BOLUS
     Route: 040

REACTIONS (4)
  - DYSPNOEA [None]
  - INJECTION SITE REACTION [None]
  - SKIN DISCOLOURATION [None]
  - THROAT IRRITATION [None]
